FAERS Safety Report 7349210-4 (Version None)
Quarter: 2011Q1

REPORT INFORMATION
  Report Type: 
  Country: None (occurrence: None)
  Receive Date: 20110225
  Receipt Date: 20101201
  Transmission Date: 20110831
  Serious: Yes (Other)
  Sender: FDA-Public Use
  Company Number: 314078

PATIENT
  Age: 66 Year
  Sex: Male
  Weight: 108.5 kg

DRUGS (14)
  1. VICTOZA [Suspect]
     Indication: DIABETES MELLITUS
     Dosage: 0.6 MG, QD, SUBCUTANEOUS, SUBCUTANEOUS
     Route: 058
     Dates: end: 20100809
  2. VICTOZA [Suspect]
     Indication: DIABETES MELLITUS
     Dosage: 0.6 MG, QD, SUBCUTANEOUS, SUBCUTANEOUS
     Route: 058
     Dates: start: 20100723, end: 20100809
  3. VITAMIN C /00008001/ (ASCORBIC ACID) [Concomitant]
  4. FLOMAX /00889901/ (MORNIFLUMATE) [Concomitant]
  5. SIMVASTATIN [Concomitant]
  6. METFORMIN (METFORMIN) [Concomitant]
  7. ACTOS [Concomitant]
  8. CELEBREX [Concomitant]
  9. ASPIRIN [Concomitant]
  10. GARLIC /01570501/ (ALLIUM SATIVUM) [Concomitant]
  11. VITAMIN E /00110501/ (TOCOPHEROL) [Concomitant]
  12. ALLOPURINOL [Concomitant]
  13. LOTREL [Concomitant]
  14. SAW PALMETTO /00833501/ (SERONA REPENS) [Concomitant]

REACTIONS (1)
  - PANCREATITIS ACUTE [None]
